FAERS Safety Report 17076483 (Version 2)
Quarter: 2019Q4

REPORT INFORMATION
  Report Type: Spontaneous
  Country: PT (occurrence: PT)
  Receive Date: 20191126
  Receipt Date: 20191218
  Transmission Date: 20200122
  Serious: Yes (Hospitalization, Other)
  Sender: FDA-Public Use
  Company Number: PT-009507513-1911PRT008081

PATIENT
  Age: 48 Year
  Sex: Male

DRUGS (3)
  1. CITRIC ACID (+) MAGNESIUM OXIDE (+) SODIUM PICOSULFATE [Suspect]
     Active Substance: ANHYDROUS CITRIC ACID\MAGNESIUM OXIDE\SODIUM PICOSULFATE
     Indication: BOWEL PREPARATION
  2. BUPROPION. [Suspect]
     Active Substance: BUPROPION
     Indication: DEPRESSION
     Dosage: 300 MILLIGRAM, QD
  3. MIRTAZAPINE. [Suspect]
     Active Substance: MIRTAZAPINE
     Indication: DEPRESSION
     Dosage: 30 MILLIGRAM, QD
     Route: 048

REACTIONS (1)
  - Hyponatraemic coma [Recovered/Resolved]
